FAERS Safety Report 7345518-7 (Version None)
Quarter: 2011Q1

REPORT INFORMATION
  Report Type: 
  Country: None (occurrence: None)
  Receive Date: 20110310
  Receipt Date: 20110228
  Transmission Date: 20110831
  Serious: Yes (Other)
  Sender: FDA-Public Use
  Company Number: US-ASTRAZENECA-2010SE15880

PATIENT
  Age: 71 Year
  Sex: Female

DRUGS (4)
  1. HEART MEDICINE [Suspect]
     Route: 065
  2. NEXIUM [Suspect]
     Route: 048
  3. BLOOD PRESSURE MEDICINE [Suspect]
     Route: 065
  4. TOPROL-XL [Suspect]
     Route: 048

REACTIONS (4)
  - DRUG DOSE OMISSION [None]
  - DYSPEPSIA [None]
  - CEREBROVASCULAR ACCIDENT [None]
  - ABDOMINAL PAIN UPPER [None]
